FAERS Safety Report 12775765 (Version 4)
Quarter: 2017Q1

REPORT INFORMATION
  Report Type: Report from Study
  Country: JP (occurrence: JP)
  Receive Date: 20160923
  Receipt Date: 20170220
  Transmission Date: 20170428
  Serious: Yes (Hospitalization)
  Sender: FDA-Public Use
  Company Number: JP-ROCHE-1830068

PATIENT
  Age: 71 Year
  Sex: Male
  Weight: 60.3 kg

DRUGS (21)
  1. ATEZOLIZUMAB [Suspect]
     Active Substance: ATEZOLIZUMAB
     Indication: RENAL CELL CARCINOMA
     Dosage: DOSE OF LAST ATEZOLIZUMAB ADMINISTERED: 1200 MG?DATE OF MOST RECENT DOSE: 10/AUG/2016
     Route: 042
     Dates: start: 20160720
  2. REBAMIPIDE [Concomitant]
     Active Substance: REBAMIPIDE
     Route: 048
     Dates: start: 20160801, end: 20160802
  3. ENALAPRIL MALEATE. [Concomitant]
     Active Substance: ENALAPRIL MALEATE
     Indication: HYPERTENSION
     Route: 048
     Dates: start: 20160426
  4. SENNOSIDE [Concomitant]
     Active Substance: SENNOSIDES
     Indication: PREMEDICATION
     Route: 048
     Dates: start: 20160920, end: 20160920
  5. CEFTRIAXONE SODIUM. [Concomitant]
     Active Substance: CEFTRIAXONE SODIUM
     Indication: PYREXIA
     Route: 042
     Dates: start: 20160730, end: 20160801
  6. SCOPOLAMINE BUTYLBROMIDE [Concomitant]
     Active Substance: SCOPOLAMINE
     Route: 030
     Dates: start: 20160921, end: 20160921
  7. MIDAZOLAM [Concomitant]
     Active Substance: MIDAZOLAM HYDROCHLORIDE
     Indication: PREMEDICATION
     Route: 042
     Dates: start: 20160921, end: 20160921
  8. HEPARINOID [Concomitant]
     Active Substance: CHONDROITIN SULFATE (BOVINE)
     Indication: DRY SKIN
     Route: 062
     Dates: start: 20160830
  9. LOXOPROFEN SODIUM HYDRATE [Concomitant]
     Active Substance: LOXOPROFEN SODIUM DIHYDRATE
     Indication: PYREXIA
     Route: 048
     Dates: start: 20160801, end: 20160802
  10. ALLOPURINOL. [Concomitant]
     Active Substance: ALLOPURINOL
     Indication: HYPERURICAEMIA
     Route: 048
     Dates: start: 20160419
  11. LANSOPRAZOLE. [Concomitant]
     Active Substance: LANSOPRAZOLE
     Route: 048
     Dates: start: 20160426
  12. REBAMIPIDE [Concomitant]
     Active Substance: REBAMIPIDE
     Route: 048
     Dates: start: 20161102
  13. LACTEC [Concomitant]
     Active Substance: CALCIUM CHLORIDE ANHYDROUS\POTASSIUM CHLORIDE\SODIUM CHLORIDE\SODIUM LACTATE
     Indication: PREMEDICATION
     Route: 042
     Dates: start: 20160921, end: 20160921
  14. ACETAMINOPHEN. [Concomitant]
     Active Substance: ACETAMINOPHEN
     Indication: PYREXIA
     Route: 042
     Dates: start: 20160731, end: 20160802
  15. BEVACIZUMAB [Suspect]
     Active Substance: BEVACIZUMAB
     Indication: RENAL CELL CARCINOMA
     Dosage: DOSE OF LAST BEVACIZUMAB ADMINISTERED: 894 MG?DATE OF MOST RECENT DOSE: 10/ AUG/2016?STARTING DOSE A
     Route: 042
     Dates: start: 20160720
  16. SPIRONOLACTONE. [Concomitant]
     Active Substance: SPIRONOLACTONE
     Indication: HYPERTENSION
     Route: 048
     Dates: start: 20160419
  17. NAPROXEN SODIUM. [Concomitant]
     Active Substance: NAPROXEN SODIUM
     Indication: PYREXIA
     Route: 048
     Dates: start: 20160803, end: 20161003
  18. REBAMIPIDE [Concomitant]
     Active Substance: REBAMIPIDE
     Route: 048
     Dates: start: 20160803, end: 20161003
  19. AMLODIPINE BESILATE [Concomitant]
     Active Substance: AMLODIPINE BESYLATE
     Indication: HYPERTENSION
     Route: 048
     Dates: start: 20160419
  20. MAGNESIUM OXIDE. [Concomitant]
     Active Substance: MAGNESIUM OXIDE
     Indication: CONSTIPATION
     Route: 048
     Dates: start: 20160907, end: 20161003
  21. SENNOSIDE [Concomitant]
     Active Substance: SENNOSIDES
     Indication: CONSTIPATION
     Route: 048
     Dates: start: 20160907, end: 20161003

REACTIONS (3)
  - Hyperthyroidism [Not Recovered/Not Resolved]
  - Diarrhoea [Recovered/Resolved]
  - Diabetes mellitus inadequate control [Recovered/Resolved]

NARRATIVE: CASE EVENT DATE: 20160826
